FAERS Safety Report 4749617-5 (Version None)
Quarter: 2005Q3

REPORT INFORMATION
  Report Type: 
  Country: None (occurrence: None)
  Receive Date: 20050819
  Receipt Date: 20050819
  Transmission Date: 20060218
  Serious: Yes (Other)
  Sender: FDA-Public Use
  Company Number: None

PATIENT
  Age: 76 Year
  Sex: Female
  Weight: 76.5 kg

DRUGS (5)
  1. RITUXIMAB [Suspect]
     Indication: NEOPLASM MALIGNANT
     Dosage: 731MG    X1   IV
     Route: 042
     Dates: start: 20050405, end: 20050405
  2. RITUXIMAB [Suspect]
  3. RITUXIMAB [Suspect]
     Dosage: 731MG    X1   IV
     Route: 042
     Dates: start: 20050809, end: 20050809
  4. RITUXIMAB [Suspect]
  5. RITUXIMAB [Suspect]

REACTIONS (7)
  - ABDOMINAL PAIN [None]
  - ANXIETY [None]
  - CHEST DISCOMFORT [None]
  - DYSPNOEA [None]
  - INFUSION RELATED REACTION [None]
  - NAUSEA [None]
  - PARAESTHESIA [None]
